FAERS Safety Report 11628039 (Version 1)
Quarter: 2015Q4

REPORT INFORMATION
  Report Type: Spontaneous
  Country: GB (occurrence: None)
  Receive Date: 20151009
  Receipt Date: 20151009
  Transmission Date: 20160304
  Serious: Yes (Hospitalization, Other)
  Sender: FDA-Public Use
  Company Number: GB-ALSI-201500221

PATIENT
  Age: 17 Year
  Sex: Female

DRUGS (2)
  1. METHYLENEDIOXYMETHAMPHETAMINE [Suspect]
     Active Substance: METHYLENEDIOXYMETHAMPHETAMINE
  2. NITROUS OXIDE. [Suspect]
     Active Substance: NITROUS OXIDE
     Indication: SUBSTANCE USE
     Dosage: RESPIRATORY
     Route: 055

REACTIONS (4)
  - Alcohol use [None]
  - Drug abuse [None]
  - Pneumomediastinum [None]
  - Mediastinitis [None]
